FAERS Safety Report 17099587 (Version 1)
Quarter: 2019Q4

REPORT INFORMATION
  Report Type: Spontaneous
  Country: SE (occurrence: SE)
  Receive Date: 20191202
  Receipt Date: 20191202
  Transmission Date: 20200122
  Serious: Yes (Hospitalization, Other)
  Sender: FDA-Public Use
  Company Number: SE-MYLANLABS-2019M1115383

PATIENT
  Age: 33 Year
  Sex: Female

DRUGS (8)
  1. PANTOPRAZOLE [Suspect]
     Active Substance: PANTOPRAZOLE
     Indication: PRODUCT USED FOR UNKNOWN INDICATION
     Dosage: 40 MILLIGRAM, QD
     Route: 048
     Dates: end: 201902
  2. METFORMIN [Concomitant]
     Active Substance: METFORMIN HYDROCHLORIDE
     Dosage: 1000 MILLIGRAM, QD
     Route: 048
     Dates: start: 20170626
  3. CYKLOKAPRON [Concomitant]
     Active Substance: TRANEXAMIC ACID
     Dosage: 2 X 3 DAGLIGEN VID BEHOV
     Route: 048
     Dates: start: 20190129
  4. CETIRIZINE [Concomitant]
     Active Substance: CETIRIZINE HYDROCHLORIDE
     Dosage: UNK,
     Route: 048
     Dates: start: 20160521
  5. ALVEDON [Concomitant]
     Active Substance: ACETAMINOPHEN
     Dosage: 1-2 VID BEHOV, H?GST 8/DYGN
     Route: 048
     Dates: start: 20180905
  6. AMLODIPINE [Concomitant]
     Active Substance: AMLODIPINE BESYLATE
     Dosage: 5 MILLIGRAM, QD
     Route: 048
     Dates: start: 20190126
  7. VENTOLINE                          /00139502/ [Concomitant]
     Active Substance: ALBUTEROL SULFATE
     Dosage: 1 VID BEHOV, MAX 6
     Route: 055
     Dates: start: 20160520
  8. LEVAXIN [Concomitant]
     Active Substance: LEVOTHYROXINE SODIUM
     Dosage: 125 MICROGRAM, QD
     Route: 048
     Dates: start: 20161117

REACTIONS (2)
  - Cutaneous vasculitis [Not Recovered/Not Resolved]
  - Vasculitis [Not Recovered/Not Resolved]

NARRATIVE: CASE EVENT DATE: 20190208
